FAERS Safety Report 23594442 (Version 1)
Quarter: 2024Q1

REPORT INFORMATION
  Report Type: Spontaneous
  Country: CN (occurrence: CN)
  Receive Date: 20240305
  Receipt Date: 20240305
  Transmission Date: 20240409
  Serious: Yes (Hospitalization, Other)
  Sender: FDA-Public Use
  Company Number: CN-IHL-000500

PATIENT
  Age: 17 Year
  Sex: Female

DRUGS (6)
  1. PALIPERIDONE [Suspect]
     Active Substance: PALIPERIDONE
     Indication: Bipolar disorder
     Route: 065
  2. PALIPERIDONE [Suspect]
     Active Substance: PALIPERIDONE
     Indication: Psychiatric symptom
     Route: 065
  3. LITHIUM CARBONATE [Suspect]
     Active Substance: LITHIUM CARBONATE
     Indication: Psychiatric symptom
     Route: 065
  4. LITHIUM CARBONATE [Suspect]
     Active Substance: LITHIUM CARBONATE
     Indication: Bipolar disorder
     Route: 065
  5. PALIPERIDONE [Suspect]
     Active Substance: PALIPERIDONE
     Indication: Bipolar disorder
     Route: 065
  6. PALIPERIDONE [Suspect]
     Active Substance: PALIPERIDONE
     Indication: Psychiatric symptom
     Route: 065

REACTIONS (4)
  - Hyperthyroidism [Recovered/Resolved]
  - Sinus arrest [Recovered/Resolved]
  - Sinus bradycardia [Recovered/Resolved]
  - Off label use [Unknown]
